FAERS Safety Report 19460769 (Version 1)
Quarter: 2021Q2

REPORT INFORMATION
  Report Type: Spontaneous
  Country: GB (occurrence: GB)
  Receive Date: 20210625
  Receipt Date: 20210625
  Transmission Date: 20210717
  Serious: Yes (Disabling)
  Sender: FDA-Public Use
  Company Number: GB-TEVA-2021-GB-1922070

PATIENT
  Age: 14 Year
  Weight: 52 kg

DRUGS (2)
  1. PREDNISOLONE. [Suspect]
     Active Substance: PREDNISOLONE
     Indication: INFLAMMATORY BOWEL DISEASE
     Dosage: 40MG
     Route: 048
     Dates: start: 20210504
  2. PENTASA [Concomitant]
     Active Substance: MESALAMINE
     Indication: ILL-DEFINED DISORDER

REACTIONS (2)
  - Hyperacusis [Not Recovered/Not Resolved]
  - Photophobia [Not Recovered/Not Resolved]

NARRATIVE: CASE EVENT DATE: 20210511
